FAERS Safety Report 17609033 (Version 1)
Quarter: 2020Q2

REPORT INFORMATION
  Report Type: Spontaneous
  Country: US (occurrence: US)
  Receive Date: 20200401
  Receipt Date: 20200401
  Transmission Date: 20200713
  Serious: Yes (Other)
  Sender: FDA-Public Use
  Company Number: US-AUROBINDO-AUR-APL-2020-015909

PATIENT
  Age: 62 Year
  Sex: Female

DRUGS (6)
  1. FLUOXETINE [Interacting]
     Active Substance: FLUOXETINE HYDROCHLORIDE
     Indication: DEPRESSION
     Dosage: SLOWLY TITRATED FROM 20 MG TO 60 MG DAILY
     Route: 065
  2. MARIJUANA [Interacting]
     Active Substance: CANNABIS SATIVA SUBSP. INDICA TOP
     Indication: ANALGESIC THERAPY
     Dosage: UNK
     Route: 065
  3. COCAINE [Interacting]
     Active Substance: COCAINE
     Indication: ANALGESIC THERAPY
     Dosage: UNK
     Route: 065
  4. IBUPROFEN. [Interacting]
     Active Substance: IBUPROFEN
     Indication: BACK PAIN
     Dosage: UNK
     Route: 065
  5. ACETAMINOPHEN. [Suspect]
     Active Substance: ACETAMINOPHEN
     Indication: BACK PAIN
     Dosage: 5-325 MG, FOUR TIMES/DAY AS NEEDED
     Route: 065
  6. TRAMADOL. [Interacting]
     Active Substance: TRAMADOL
     Indication: BACK PAIN
     Dosage: 50 MILLIGRAM, 3 TIMES A DAY
     Route: 065

REACTIONS (6)
  - Agitation [Unknown]
  - Drug interaction [Unknown]
  - Chronic kidney disease [Unknown]
  - Dizziness [Unknown]
  - Drug ineffective [Unknown]
  - Toxicity to various agents [Unknown]
